FAERS Safety Report 9234375 (Version 1)
Quarter: 2013Q2

REPORT INFORMATION
  Report Type: Spontaneous
  Country: US (occurrence: US)
  Receive Date: 20130416
  Receipt Date: 20130416
  Transmission Date: 20140414
  Serious: No
  Sender: FDA-Public Use
  Company Number: US-B.I. PHARMACEUTICALS,INC./RIDGEFIELD-2013-BI-08913BP

PATIENT
  Age: 80 Year
  Sex: Male
  Weight: 73 kg

DRUGS (2)
  1. ZANTAC 75 (RANITIDINE HYDROCHLORIDE) [Suspect]
     Indication: DYSPEPSIA
     Dosage: 75 MG
     Route: 048
     Dates: start: 20130327
  2. KLONOPIN [Concomitant]
     Route: 048

REACTIONS (2)
  - Drug effect incomplete [Not Recovered/Not Resolved]
  - Drug effect incomplete [Not Recovered/Not Resolved]
